FAERS Safety Report 13892401 (Version 3)
Quarter: 2017Q4

REPORT INFORMATION
  Report Type: Spontaneous
  Country: US (occurrence: US)
  Receive Date: 20170822
  Receipt Date: 20171020
  Transmission Date: 20180320
  Serious: Yes (Other)
  Sender: FDA-Public Use
  Company Number: US-PFIZER INC-2017360833

PATIENT
  Age: 67 Year
  Sex: Male
  Weight: 189 kg

DRUGS (10)
  1. FISH OIL [Concomitant]
     Active Substance: FISH OIL
     Indication: SUPPLEMENTATION THERAPY
     Dosage: 1200MG SOFT GEL ONE DAILY
     Dates: start: 2010
  2. METOPROLOL SUCC [Concomitant]
     Active Substance: METOPROLOL SUCCINATE
     Dosage: 50MG ONE TABLET A DAY
     Dates: start: 2015
  3. XELJANZ XR [Suspect]
     Active Substance: TOFACITINIB CITRATE
     Indication: RHEUMATOID ARTHRITIS
  4. FUROSEMIDE. [Concomitant]
     Active Substance: FUROSEMIDE
     Dosage: 40MG ONCE IN THE MORNING
  5. XELJANZ XR [Suspect]
     Active Substance: TOFACITINIB CITRATE
     Indication: ARTHRITIS
     Dosage: 11MG ONE BY MOUTH DAILY
     Route: 048
     Dates: start: 2017
  6. DOXAZOSIN MESYLATE. [Concomitant]
     Active Substance: DOXAZOSIN MESYLATE
     Dosage: 8MG ONCE EVERY MORNING
  7. FLAXSEED OIL /01649403/ [Concomitant]
     Dosage: 1300MG SOFT GEL ONCE A DAY
     Dates: start: 2010
  8. LEVOTHYROXINE. [Concomitant]
     Active Substance: LEVOTHYROXINE
     Dosage: 100MCG ONCE A DAY
     Dates: start: 2016
  9. SULFASALAZINE. [Concomitant]
     Active Substance: SULFASALAZINE
     Indication: ARTHRITIS
     Dosage: 500MG TWO AT NIGHT
     Dates: start: 2017
  10. AMLODIPINE BESYLATE. [Concomitant]
     Active Substance: AMLODIPINE BESYLATE
     Dosage: 5MG ONCE EVERY MORNING
     Dates: start: 2013

REACTIONS (1)
  - Tooth abscess [Recovered/Resolved]

NARRATIVE: CASE EVENT DATE: 201708
